FAERS Safety Report 4785122-8 (Version None)
Quarter: 2005Q3

REPORT INFORMATION
  Report Type: 
  Country: None (occurrence: None)
  Receive Date: 20050928
  Receipt Date: 20050914
  Transmission Date: 20060218
  Serious: Yes (Death, Life-Threatening, Hospitalization)
  Sender: FDA-Public Use
  Company Number: JP-2004-026888

PATIENT
  Age: 68 Year
  Sex: Female
  Weight: 62 kg

DRUGS (8)
  1. BETASERON [Suspect]
     Indication: RELAPSING-REMITTING MULTIPLE SCLEROSIS
     Dosage: 8 MIU, EVERY 2D, SUBCUTANEOUS
     Route: 058
     Dates: start: 20040510, end: 20040528
  2. MEVALOTIN (PRAVASTATIN SODIUM) TABLET [Concomitant]
  3. PARIET (RABEORAZOLE SODIUM) TABLET [Concomitant]
  4. LENDORMIN (BROTIZOLAM) TABLET [Concomitant]
  5. ASPARA K (ASPARTATE POTASSIUM) TABLET [Concomitant]
  6. TEGRETOL (CARBAMAZIPINE) TABLET [Concomitant]
  7. ONE-ALPHA (ALFACALCIDOL) TABLET [Concomitant]
  8. PREDONINE [Concomitant]

REACTIONS (12)
  - ALANINE AMINOTRANSFERASE INCREASED [None]
  - BLOOD ALKALINE PHOSPHATASE INCREASED [None]
  - BLOOD BETA-D-GLUCAN INCREASED [None]
  - BLOOD PRESSURE DECREASED [None]
  - C-REACTIVE PROTEIN INCREASED [None]
  - FATIGUE [None]
  - INTERSTITIAL LUNG DISEASE [None]
  - LYMPHOCYTE COUNT DECREASED [None]
  - OXYGEN SATURATION DECREASED [None]
  - PNEUMOTHORAX [None]
  - PYREXIA [None]
  - RESPIRATORY ACIDOSIS [None]
